FAERS Safety Report 11454755 (Version 1)
Quarter: 2015Q3

REPORT INFORMATION
  Report Type: Spontaneous
  Country: US (occurrence: US)
  Receive Date: 20150831
  Receipt Date: 20150831
  Transmission Date: 20151125
  Serious: No
  Sender: FDA-Public Use
  Company Number: US-ELI_LILLY_AND_COMPANY-US201005002954

PATIENT
  Age: 24 Year
  Sex: Female

DRUGS (6)
  1. CYMBALTA [Suspect]
     Active Substance: DULOXETINE HYDROCHLORIDE
     Dosage: 20 MG, DAILY (1/D)
     Dates: start: 20100425, end: 20100501
  2. CYMBALTA [Suspect]
     Active Substance: DULOXETINE HYDROCHLORIDE
     Dosage: 20 MG, 2/D
     Dates: start: 2010, end: 2010
  3. CYMBALTA [Suspect]
     Active Substance: DULOXETINE HYDROCHLORIDE
     Dosage: 60 MG, DAILY (1/D)
     Dates: start: 2010, end: 201004
  4. PORTIA [Concomitant]
     Active Substance: ETHINYL ESTRADIOL\LEVONORGESTREL
  5. CYMBALTA [Suspect]
     Active Substance: DULOXETINE HYDROCHLORIDE
     Dosage: 20 MG, 2/D
     Dates: start: 201004, end: 201004
  6. CYMBALTA [Suspect]
     Active Substance: DULOXETINE HYDROCHLORIDE
     Indication: NERVE INJURY
     Dosage: 20 MG, DAILY (1/D)
     Dates: start: 201001, end: 2010

REACTIONS (12)
  - Dizziness [Not Recovered/Not Resolved]
  - Chest pain [Unknown]
  - Drug withdrawal syndrome [Not Recovered/Not Resolved]
  - Feeling abnormal [Not Recovered/Not Resolved]
  - Abdominal pain [Unknown]
  - Back pain [Unknown]
  - Nausea [Not Recovered/Not Resolved]
  - Muscle spasms [Unknown]
  - Tinnitus [Not Recovered/Not Resolved]
  - Paraesthesia [Unknown]
  - Off label use [Recovered/Resolved]
  - Headache [Unknown]

NARRATIVE: CASE EVENT DATE: 2010
